FAERS Safety Report 23293952 (Version 2)
Quarter: 2023Q4

REPORT INFORMATION
  Report Type: Report from Study
  Country: US (occurrence: None)
  Receive Date: 20231213
  Receipt Date: 20231220
  Transmission Date: 20240110
  Serious: No
  Sender: FDA-Public Use
  Company Number: 2023A280294

PATIENT
  Age: 64 Year
  Sex: Female
  Weight: 76.7 kg

DRUGS (1)
  1. TEZSPIRE [Suspect]
     Active Substance: TEZEPELUMAB-EKKO
     Route: 058

REACTIONS (16)
  - Dyspnoea [Unknown]
  - Respiration abnormal [Unknown]
  - Dyspnoea paroxysmal nocturnal [Unknown]
  - Musculoskeletal chest pain [Unknown]
  - Pyrexia [Unknown]
  - Chills [Unknown]
  - Hyperhidrosis [Unknown]
  - Fatigue [Unknown]
  - Decreased appetite [Unknown]
  - Weight decreased [Unknown]
  - Joint swelling [Unknown]
  - Cough [Unknown]
  - Productive cough [Unknown]
  - Snoring [Unknown]
  - Somnolence [Unknown]
  - Drug ineffective [Unknown]
